FAERS Safety Report 19745791 (Version 6)
Quarter: 2024Q1

REPORT INFORMATION
  Report Type: Spontaneous
  Country: DE (occurrence: DE)
  Receive Date: 20210825
  Receipt Date: 20240322
  Transmission Date: 20240409
  Serious: Yes (Hospitalization, Other)
  Sender: FDA-Public Use
  Company Number: DE-INDIVIOR US-INDV-128598-2021

PATIENT
  Age: 41 Year
  Sex: Male

DRUGS (15)
  1. PREGABALIN [Interacting]
     Active Substance: PREGABALIN
     Indication: Product used for unknown indication
     Dosage: UNK
     Route: 065
  2. PREGABALIN [Interacting]
     Active Substance: PREGABALIN
     Dosage: UNK
     Route: 065
  3. PREGABALIN [Interacting]
     Active Substance: PREGABALIN
     Dosage: UNK
     Route: 065
  4. PREGABALIN [Interacting]
     Active Substance: PREGABALIN
     Dosage: UNK
     Route: 065
  5. PREGABALIN [Interacting]
     Active Substance: PREGABALIN
     Dosage: UNK
     Route: 065
  6. DIAZEPAM [Interacting]
     Active Substance: DIAZEPAM
     Indication: Product used for unknown indication
     Dosage: UNK
     Route: 065
  7. BUPRENORPHINE [Interacting]
     Active Substance: BUPRENORPHINE
     Indication: Product used for unknown indication
     Dosage: UNK
     Route: 065
  8. LORAZEPAM [Interacting]
     Active Substance: LORAZEPAM
     Indication: Product used for unknown indication
     Dosage: UNK
     Route: 065
  9. TEMAZEPAM [Suspect]
     Active Substance: TEMAZEPAM
     Indication: Product used for unknown indication
     Dosage: UNK
     Route: 065
  10. AMITRIPTYLINE [Suspect]
     Active Substance: AMITRIPTYLINE
     Indication: Product used for unknown indication
     Dosage: UNK
     Route: 065
  11. MORPHINE [Interacting]
     Active Substance: MORPHINE
     Indication: Product used for unknown indication
     Dosage: UNK
     Route: 065
  12. NORDAZEPAM [Interacting]
     Active Substance: NORDAZEPAM
     Indication: Product used for unknown indication
     Dosage: UNK
     Route: 065
  13. CODEINE [Interacting]
     Active Substance: CODEINE
     Indication: Product used for unknown indication
     Dosage: UNK
     Route: 065
  14. LEVOMETHADONE [Suspect]
     Active Substance: LEVOMETHADONE
     Indication: Product used for unknown indication
     Dosage: UNK
     Route: 065
  15. NORTRIPTYLINE [Suspect]
     Active Substance: NORTRIPTYLINE
     Indication: Product used for unknown indication
     Dosage: UNK
     Route: 065

REACTIONS (27)
  - Psychotic behaviour [Unknown]
  - Impaired driving ability [Unknown]
  - Homicidal ideation [Unknown]
  - Depressed level of consciousness [Unknown]
  - Aggression [Unknown]
  - Hospitalisation [Unknown]
  - Psychotic disorder [Unknown]
  - Substance abuse [Unknown]
  - Bradyphrenia [Unknown]
  - Emotional distress [Unknown]
  - Miosis [Unknown]
  - Somnolence [Unknown]
  - Amnesia [Unknown]
  - Disorientation [Unknown]
  - Mood swings [Unknown]
  - Dysarthria [Unknown]
  - Gait disturbance [Unknown]
  - Drug dependence [Unknown]
  - Drug abuse [Unknown]
  - Delusion [Unknown]
  - Bradykinesia [Unknown]
  - Abnormal behaviour [Unknown]
  - Restlessness [Unknown]
  - Logorrhoea [Unknown]
  - Thinking abnormal [Unknown]
  - Drug interaction [Unknown]
  - Confusional state [Unknown]
